FAERS Safety Report 9670789 (Version 1)
Quarter: 2013Q4

REPORT INFORMATION
  Report Type: Report from Study
  Country: LB (occurrence: LB)
  Receive Date: 20131106
  Receipt Date: 20131106
  Transmission Date: 20140711
  Serious: Yes (Hospitalization, Other)
  Sender: FDA-Public Use
  Company Number: LB-SA-2013SA112732

PATIENT
  Age: 62 Year
  Sex: Female

DRUGS (6)
  1. LANTUS SOLOSTAR [Suspect]
     Indication: DIABETES MELLITUS
     Dosage: DOSE:30 UNIT(S)
     Route: 058
     Dates: start: 201305
  2. APIDRA [Concomitant]
     Indication: DIABETES MELLITUS
     Dosage: 15 U SOS AS PER HGT
     Route: 058
     Dates: start: 201305
  3. PLENICA [Concomitant]
     Route: 048
  4. APO-ALLOPURINOL [Concomitant]
     Route: 048
  5. BETASERC [Concomitant]
     Route: 048
  6. SEROXAT [Concomitant]
     Route: 048

REACTIONS (3)
  - Myocardial infarction [Recovered/Resolved]
  - Chest pain [Recovered/Resolved]
  - Musculoskeletal pain [Recovered/Resolved]
